FAERS Safety Report 8010545-3 (Version None)
Quarter: 2011Q4

REPORT INFORMATION
  Report Type: 
  Country: None (occurrence: None)
  Receive Date: 20111228
  Receipt Date: 20111220
  Transmission Date: 20120403
  Serious: Yes (Hospitalization, Disabling, Other)
  Sender: FDA-Public Use
  Company Number: PHHY2011RO67493

PATIENT
  Sex: Female

DRUGS (2)
  1. CALCIUM ACETATE [Concomitant]
  2. ZOLEDRONOC ACID [Suspect]
     Indication: OSTEOPOROSIS
     Dosage: 5 MG, PER YEAR
     Route: 042
     Dates: start: 20110624

REACTIONS (25)
  - PERIARTICULAR DISORDER [None]
  - OEDEMA PERIPHERAL [None]
  - ERUCTATION [None]
  - MICTURITION URGENCY [None]
  - INFLUENZA LIKE ILLNESS [None]
  - PYREXIA [None]
  - ERYTHEMA NODOSUM [None]
  - INFLAMMATORY PAIN [None]
  - CONSTIPATION [None]
  - HEADACHE [None]
  - LEUKOPENIA [None]
  - POLLAKIURIA [None]
  - DEHYDRATION [None]
  - ARTHRALGIA [None]
  - BLOOD CREATININE INCREASED [None]
  - OEDEMA [None]
  - INSOMNIA [None]
  - BLOOD FIBRINOGEN INCREASED [None]
  - GENERAL PHYSICAL HEALTH DETERIORATION [None]
  - SPINAL OSTEOARTHRITIS [None]
  - MYALGIA [None]
  - ANAEMIA [None]
  - DECREASED APPETITE [None]
  - MUSCULOSKELETAL CHEST PAIN [None]
  - PRURITUS [None]
